FAERS Safety Report 15438203 (Version 1)
Quarter: 2018Q3

REPORT INFORMATION
  Report Type: Report from Study
  Country: JP (occurrence: JP)
  Receive Date: 20180928
  Receipt Date: 20180928
  Transmission Date: 20181010
  Serious: Yes (Other)
  Sender: FDA-Public Use
  Company Number: JP-BRISTOL-MYERS SQUIBB COMPANY-BMS-2017-044357

PATIENT
  Age: 47 Year
  Sex: Male
  Weight: 85 kg

DRUGS (7)
  1. RESPLEN [Concomitant]
     Active Substance: EPRAZINONE
     Indication: PRODUCT USED FOR UNKNOWN INDICATION
     Dosage: 60 MG, SINGLE
     Route: 048
     Dates: start: 20170321, end: 20170406
  2. APIXABAN [Suspect]
     Active Substance: APIXABAN
     Indication: PULMONARY EMBOLISM
     Dosage: 10 MG, BID
     Route: 048
     Dates: start: 20170321
  3. REBAMIPIDE [Concomitant]
     Active Substance: REBAMIPIDE
     Indication: PRODUCT USED FOR UNKNOWN INDICATION
     Dosage: 200 MG, SINGLE
     Route: 048
     Dates: start: 20170322, end: 20170406
  4. CELECOX [Concomitant]
     Active Substance: CELECOXIB
     Indication: PYREXIA
     Dosage: 200 MG, SINGLE
     Route: 048
     Dates: start: 20170323, end: 20170407
  5. HEPARIN SODIUM. [Concomitant]
     Active Substance: HEPARIN SODIUM
     Indication: PRODUCT USED FOR UNKNOWN INDICATION
     Dosage: 10000 IU, SINGLE
     Route: 065
     Dates: start: 20170321, end: 20170329
  6. APIXABAN [Suspect]
     Active Substance: APIXABAN
     Indication: DEEP VEIN THROMBOSIS
     Dosage: 5 MG, BID
     Route: 048
     Dates: start: 20170328
  7. CALONAL [Concomitant]
     Active Substance: ACETAMINOPHEN
     Indication: PRODUCT USED FOR UNKNOWN INDICATION
     Dosage: 800 MG, SINGLE
     Route: 048
     Dates: start: 20170321, end: 20170406

REACTIONS (1)
  - Drug-induced liver injury [Recovered/Resolved]

NARRATIVE: CASE EVENT DATE: 20170324
